FAERS Safety Report 15494117 (Version 1)
Quarter: 2018Q4

REPORT INFORMATION
  Report Type: Spontaneous
  Country: JP (occurrence: JP)
  Receive Date: 20181012
  Receipt Date: 20181012
  Transmission Date: 20190205
  Serious: Yes (Hospitalization)
  Sender: FDA-Public Use
  Company Number: JP-PFIZER INC-2018400601

PATIENT
  Sex: Female
  Weight: 40 kg

DRUGS (1)
  1. JZOLOFT 50MG [Suspect]
     Active Substance: SERTRALINE HYDROCHLORIDE
     Dosage: 50 MG, UNK (TAKEN ONLY ONE TIME)
     Route: 048

REACTIONS (5)
  - Asthenia [Recovered/Resolved]
  - Hypoaesthesia [Unknown]
  - Feeling abnormal [Not Recovered/Not Resolved]
  - Tension headache [Unknown]
  - Headache [Unknown]
